FAERS Safety Report 15785837 (Version 2)
Quarter: 2019Q1

REPORT INFORMATION
  Report Type: Spontaneous
  Country: US (occurrence: US)
  Receive Date: 20190103
  Receipt Date: 20190211
  Transmission Date: 20190417
  Serious: Yes (Other)
  Sender: FDA-Public Use
  Company Number: US-BAYER-2019-000333

PATIENT
  Age: 22 Year
  Sex: Female
  Weight: 66.7 kg

DRUGS (2)
  1. LEVONORGESTREL. [Suspect]
     Active Substance: LEVONORGESTREL
     Indication: CONTRACEPTION
     Dosage: 20 MCG/24HR, CONT
     Route: 015
     Dates: start: 201606, end: 20170912
  2. MIRENA [Suspect]
     Active Substance: LEVONORGESTREL
     Indication: CONTRACEPTION
     Dosage: UNK
     Dates: start: 201606, end: 20170803

REACTIONS (5)
  - Device breakage [None]
  - Device difficult to use [None]
  - Complication of device removal [None]
  - Uterine perforation [Recovered/Resolved]
  - Abdominal pain [Recovered/Resolved]
